FAERS Safety Report 7336135-3 (Version None)
Quarter: 2011Q1

REPORT INFORMATION
  Report Type: 
  Country: None (occurrence: None)
  Receive Date: 20110302
  Receipt Date: 20110302
  Transmission Date: 20110831
  Serious: Yes (Other)
  Sender: FDA-Public Use
  Company Number: None

PATIENT
  Age: 53 Year
  Sex: Female
  Weight: 105.6881 kg

DRUGS (1)
  1. ROPINIROLE [Suspect]
     Dosage: 2MG FOUR TIMES A DAY PO
     Route: 048
     Dates: start: 20110108, end: 20110108

REACTIONS (4)
  - HYPERHIDROSIS [None]
  - PRODUCT QUALITY ISSUE [None]
  - NAUSEA [None]
  - DYSSTASIA [None]
